FAERS Safety Report 12295107 (Version 1)
Quarter: 2016Q2

REPORT INFORMATION
  Report Type: Spontaneous
  Country: None (occurrence: None)
  Receive Date: 20160421
  Receipt Date: 20160421
  Transmission Date: 20160815
  Serious: No
  Sender: FDA-Public Use
  Company Number: None

PATIENT
  Age: 78 Year
  Sex: Male

DRUGS (1)
  1. CAPECITABINE TAB 500MG [Suspect]
     Active Substance: CAPECITABINE
     Indication: RECTAL CANCER

REACTIONS (5)
  - Diarrhoea [None]
  - Rash pruritic [None]
  - Skin exfoliation [None]
  - Radiation injury [None]
  - Blister [None]

NARRATIVE: CASE EVENT DATE: 20160413
